FAERS Safety Report 9431866 (Version 1)
Quarter: 2013Q3

REPORT INFORMATION
  Report Type: Spontaneous
  Country: US (occurrence: None)
  Receive Date: 20130726
  Receipt Date: 20130726
  Transmission Date: 20140515
  Serious: Yes (Other)
  Sender: FDA-Public Use
  Company Number: 2013DEPUS00542

PATIENT
  Age: 58 Year
  Sex: Male

DRUGS (1)
  1. DEPOCYTE [Suspect]
     Indication: CHRONIC MYELOID LEUKAEMIA

REACTIONS (2)
  - Optic atrophy [None]
  - Off label use [None]
